FAERS Safety Report 18310626 (Version 1)
Quarter: 2020Q3

REPORT INFORMATION
  Report Type: Spontaneous
  Country: BR (occurrence: BR)
  Receive Date: 20200925
  Receipt Date: 20200925
  Transmission Date: 20201103
  Serious: Yes (Other)
  Sender: FDA-Public Use
  Company Number: BR-TEVA-2020-BR-1833096

PATIENT
  Sex: Female

DRUGS (2)
  1. FINGOLIMOD. [Suspect]
     Active Substance: FINGOLIMOD
     Route: 065
     Dates: start: 2019, end: 2020
  2. COPAXONE [Suspect]
     Active Substance: GLATIRAMER ACETATE
     Dosage: USED FOR MANY YEARS
     Route: 065
     Dates: end: 2019

REACTIONS (2)
  - Drug effect less than expected [Unknown]
  - Renal neoplasm [Unknown]
